FAERS Safety Report 23167873 (Version 1)
Quarter: 2023Q4

REPORT INFORMATION
  Report Type: Report from Study
  Country: US (occurrence: US)
  Receive Date: 20231109
  Receipt Date: 20231109
  Transmission Date: 20240110
  Serious: Yes (Hospitalization)
  Sender: FDA-Public Use
  Company Number: US-Eisai Medical Research-EC-2023-142075

PATIENT
  Age: 63 Year
  Sex: Male

DRUGS (4)
  1. LENVIMA [Suspect]
     Active Substance: LENVATINIB
     Indication: Renal cancer
     Route: 048
     Dates: start: 20230607, end: 20230706
  2. LENVIMA [Suspect]
     Active Substance: LENVATINIB
     Route: 048
     Dates: start: 20230805, end: 202309
  3. LENVIMA [Suspect]
     Active Substance: LENVATINIB
     Dosage: STARTED //2023
     Route: 048
  4. KEYTRUDA [Concomitant]
     Active Substance: PEMBROLIZUMAB
     Indication: Product used for unknown indication
     Dosage: DOSE UNKNOWN
     Route: 042

REACTIONS (4)
  - Dehydration [Recovered/Resolved]
  - Constipation [Recovered/Resolved]
  - Fatigue [Recovered/Resolved]
  - Hypertension [Not Recovered/Not Resolved]

NARRATIVE: CASE EVENT DATE: 20230601
